FAERS Safety Report 7174632-4 (Version None)
Quarter: 2010Q4

REPORT INFORMATION
  Report Type: 
  Country: None (occurrence: None)
  Receive Date: 20101219
  Receipt Date: 20100405
  Transmission Date: 20110411
  Serious: No
  Sender: FDA-Public Use
  Company Number: US-AMGEN-KDL403652

PATIENT

DRUGS (7)
  1. ENBREL [Suspect]
     Indication: PRODUCT USED FOR UNKNOWN INDICATION
     Dosage: 50 MG, QWK
     Route: 058
  2. CENTRUM SILVER [Concomitant]
     Dosage: UNK UNK, UNK
  3. LISINOPRIL [Concomitant]
     Dosage: 5 MG, UNK
  4. ASCORBIC ACID [Concomitant]
     Dosage: 100 MG, UNK
  5. RANITIDINE HYDROCHLORIDE [Concomitant]
     Dosage: 75 MG, UNK
  6. MULTI-VITAMINS [Concomitant]
     Dosage: UNK UNK, UNK
  7. CALCIUM [Concomitant]
     Dosage: 500 MG, UNK

REACTIONS (1)
  - LOCALISED INFECTION [None]
